FAERS Safety Report 6538788-6 (Version None)
Quarter: 2010Q1

REPORT INFORMATION
  Report Type: 
  Country: None (occurrence: None)
  Receive Date: 20100115
  Receipt Date: 20100105
  Transmission Date: 20100710
  Serious: Yes (Hospitalization)
  Sender: FDA-Public Use
  Company Number: CN-JNJFOC-20100101769

PATIENT
  Age: 5 Month
  Sex: Male
  Weight: 8.16 kg

DRUGS (2)
  1. PARACETAMOL [Suspect]
     Route: 048
  2. PARACETAMOL [Suspect]
     Indication: PYREXIA
     Dosage: GIVEN AT 2.5 HOURS AND 11 HOURS APART
     Route: 048

REACTIONS (4)
  - ACCIDENTAL OVERDOSE [None]
  - DIARRHOEA [None]
  - IRRITABILITY [None]
  - VOMITING [None]
